FAERS Safety Report 6181086-3 (Version None)
Quarter: 2009Q2

REPORT INFORMATION
  Report Type: 
  Country: None (occurrence: None)
  Receive Date: 20090501
  Receipt Date: 20090114
  Transmission Date: 20091009
  Serious: Yes (Other)
  Sender: FDA-Public Use
  Company Number: 000532

PATIENT

DRUGS (1)
  1. PARACETAMOL WITH CODEINE PHOSPHATE (CODEINE PHOSPHATE AND PARACETAMOL) [Suspect]
     Dosage: (CODEINE 30 MG AND PARACETAMOL 500 MG IN COMBINATION ORAL)
     Route: 048

REACTIONS (2)
  - DEAFNESS NEUROSENSORY [None]
  - SUDDEN HEARING LOSS [None]
